FAERS Safety Report 16250030 (Version 1)
Quarter: 2019Q2

REPORT INFORMATION
  Report Type: Spontaneous
  Country: ES (occurrence: ES)
  Receive Date: 20190426
  Receipt Date: 20190426
  Transmission Date: 20190711
  Serious: Yes (Death, Other)
  Sender: FDA-Public Use
  Company Number: ES-FRESENIUS KABI-FK201904879

PATIENT
  Age: 64 Year
  Sex: Male

DRUGS (8)
  1. FLUOROURACIL. [Concomitant]
     Active Substance: FLUOROURACIL
     Indication: COLORECTAL CANCER METASTATIC
  2. IRINOTECAN [Concomitant]
     Active Substance: IRINOTECAN
     Indication: COLORECTAL CANCER METASTATIC
  3. CAPECITABINE. [Concomitant]
     Active Substance: CAPECITABINE
     Indication: COLORECTAL CANCER METASTATIC
  4. CETUXIMAB. [Concomitant]
     Active Substance: CETUXIMAB
     Indication: COLORECTAL CANCER METASTATIC
  5. FOLINIC ACID [Concomitant]
     Active Substance: LEUCOVORIN
     Indication: COLORECTAL CANCER METASTATIC
  6. OXALIPLATIN (MANUFACTURER UNKNOWN) [Suspect]
     Active Substance: OXALIPLATIN
     Indication: COLORECTAL CANCER METASTATIC
     Route: 065
  7. BEVACIZUMAB. [Concomitant]
     Active Substance: BEVACIZUMAB
     Indication: COLORECTAL CANCER METASTATIC
  8. YTTRIUM (90 Y) [Suspect]
     Active Substance: YTTRIUM CHLORIDE Y-90
     Indication: COLORECTAL CANCER METASTATIC
     Dosage: INTRA-ARTERIAL RADIOTHERAPY (SIRT) WITH A REDUCED DOSE (1.45 GBQ)

REACTIONS (2)
  - Non-cirrhotic portal hypertension [Fatal]
  - Hepatic encephalopathy [Fatal]
